FAERS Safety Report 4750613-2 (Version None)
Quarter: 2005Q3

REPORT INFORMATION
  Report Type: 
  Country: None (occurrence: None)
  Receive Date: 20050823
  Receipt Date: 20040730
  Transmission Date: 20060218
  Serious: Yes (Hospitalization)
  Sender: FDA-Public Use
  Company Number: FR-ROCHE-376197

PATIENT
  Age: 77 Year
  Sex: Male

DRUGS (4)
  1. ROCEPHIN [Suspect]
     Indication: OSTEITIS
     Route: 042
     Dates: start: 20040524, end: 20040613
  2. FLAGYL [Suspect]
     Indication: OSTEITIS
     Dosage: FORMULATION: INJECTABLE SOLUTION.
     Route: 042
     Dates: start: 20040524, end: 20040613
  3. CIFLOX [Concomitant]
     Indication: OSTEITIS
     Dosage: DOSING REGIMEN: REPORTED AS 1 DOSE A DAY.
     Route: 048
     Dates: start: 20040528, end: 20040609
  4. AMIKLIN [Concomitant]
     Indication: OSTEITIS
     Dates: start: 20040524, end: 20040528

REACTIONS (5)
  - AMPUTATION [None]
  - CUTANEOUS VASCULITIS [None]
  - OSTEITIS [None]
  - POST PROCEDURAL COMPLICATION [None]
  - VASCULAR PURPURA [None]
